FAERS Safety Report 7688372-6 (Version None)
Quarter: 2011Q3

REPORT INFORMATION
  Report Type: 
  Country: None (occurrence: None)
  Receive Date: 20110817
  Receipt Date: 20110812
  Transmission Date: 20111222
  Serious: No
  Sender: FDA-Public Use
  Company Number: US-PFIZER INC-2011099042

PATIENT
  Sex: Male

DRUGS (9)
  1. CHANTIX [Suspect]
     Indication: SMOKING CESSATION THERAPY
     Dosage: STARTING MONTH PACK,UNK
     Route: 048
     Dates: start: 20080116, end: 20080301
  2. OXYCODONE HCL AND ACETAMINOPHEN [Concomitant]
     Indication: PAIN
     Dosage: UNK
     Dates: start: 20060101, end: 20090101
  3. AMBIEN [Concomitant]
  4. CARISOPRODOL [Concomitant]
     Indication: MUSCLE RELAXANT THERAPY
     Dosage: UNK
     Dates: start: 20060101, end: 20090101
  5. HYDROCODONE [Concomitant]
     Indication: PAIN
     Dosage: UNK
     Dates: start: 20040101, end: 20090101
  6. AMBIEN [Concomitant]
     Indication: INSOMNIA
     Dosage: UNK
     Dates: start: 20050101, end: 20080101
  7. ALPRAZOLAM [Concomitant]
     Indication: DEPRESSION
  8. LUNESTA [Concomitant]
     Indication: INSOMNIA
     Dosage: 3 MG, UNK
     Dates: start: 20060101, end: 20090101
  9. ALPRAZOLAM [Concomitant]
     Indication: INSOMNIA
     Dosage: 0.5 MG, UNK
     Dates: start: 20070101, end: 20090101

REACTIONS (3)
  - DEPRESSION [None]
  - INSOMNIA [None]
  - AGGRESSION [None]
